FAERS Safety Report 6883939-7 (Version None)
Quarter: 2010Q3

REPORT INFORMATION
  Report Type: 
  Country: None (occurrence: None)
  Receive Date: 20100729
  Receipt Date: 20100720
  Transmission Date: 20110219
  Serious: Yes (Death)
  Sender: FDA-Public Use
  Company Number: US-CUBIST-2010S1000910

PATIENT
  Sex: Male

DRUGS (3)
  1. CUBICIN [Suspect]
     Indication: ENTEROCOCCAL INFECTION
  2. VANCOMYCIN [Concomitant]
     Indication: ENTEROCOCCAL INFECTION
  3. VANCOMYCIN [Concomitant]
     Indication: SEPSIS

REACTIONS (1)
  - DEATH [None]
